FAERS Safety Report 19545899 (Version 2)
Quarter: 2021Q3

REPORT INFORMATION
  Report Type: Spontaneous
  Country: JP (occurrence: JP)
  Receive Date: 20210713
  Receipt Date: 20210902
  Transmission Date: 20211014
  Serious: Yes (Death, Life-Threatening, Hospitalization, Other)
  Sender: FDA-Public Use
  Company Number: JP-DSJP-DSJ-2021-101339

PATIENT
  Age: 76 Year
  Sex: Male
  Weight: 48 kg

DRUGS (7)
  1. DEXART [Concomitant]
     Active Substance: DEXAMETHASONE SODIUM PHOSPHATE
     Dosage: 1 DF, QD
     Route: 041
     Dates: start: 20210308
  2. DEXART [Concomitant]
     Active Substance: DEXAMETHASONE SODIUM PHOSPHATE
     Indication: VOMITING
     Dosage: 1 DF, QD
     Route: 041
     Dates: start: 20210104
  3. ENHERTU [Suspect]
     Active Substance: FAM-TRASTUZUMAB DERUXTECAN-NXKI
     Dosage: 5.4 MG/KG, ONCE EVERY 3 WK
     Route: 041
     Dates: start: 20210308, end: 20210308
  4. GRANISETRON                        /01178102/ [Concomitant]
     Active Substance: GRANISETRON
     Dosage: 1 DF, QD
     Route: 041
     Dates: start: 20210308
  5. ENHERTU [Suspect]
     Active Substance: FAM-TRASTUZUMAB DERUXTECAN-NXKI
     Indication: HER2 POSITIVE GASTRIC CANCER
     Dosage: 6.4 MG/KG, ONCE EVERY 3 WK
     Route: 041
     Dates: start: 20210104, end: 20210104
  6. GRANISETRON                        /01178102/ [Concomitant]
     Active Substance: GRANISETRON
     Indication: VOMITING
     Dosage: 1 DF, QD
     Route: 041
     Dates: start: 20210104
  7. DECADRON [Concomitant]
     Active Substance: DEXAMETHASONE
     Indication: VOMITING
     Dosage: 8 MG, QD
     Route: 048
     Dates: start: 20210308, end: 20210310

REACTIONS (9)
  - Disease progression [Fatal]
  - Decreased appetite [Recovering/Resolving]
  - Nausea [Unknown]
  - Anaemia [Recovering/Resolving]
  - Febrile neutropenia [Recovered/Resolved]
  - White blood cell count decreased [Recovered/Resolved]
  - Malaise [Unknown]
  - Decreased appetite [Recovering/Resolving]
  - Weight decreased [Unknown]

NARRATIVE: CASE EVENT DATE: 202101
